FAERS Safety Report 9513231 (Version 1)
Quarter: 2013Q3

REPORT INFORMATION
  Report Type: Spontaneous
  Country: US (occurrence: US)
  Receive Date: 20130910
  Receipt Date: 20130910
  Transmission Date: 20140515
  Serious: Yes (Death, Hospitalization)
  Sender: FDA-Public Use
  Company Number: US-ACTAVIS-2013-15528

PATIENT
  Age: 57 Year
  Sex: Female

DRUGS (12)
  1. METFORMIN HYDROCHLORIDE EXTENDED RELEASE (WATSON LABORATORIES) [Suspect]
     Indication: DIABETES MELLITUS
     Dosage: UNK
     Route: 048
  2. METFORMIN HYDROCHLORIDE EXTENDED RELEASE (WATSON LABORATORIES) [Suspect]
     Indication: COMPLETED SUICIDE
  3. METFORMIN HYDROCHLORIDE EXTENDED RELEASE (WATSON LABORATORIES) [Suspect]
     Indication: INTENTIONAL OVERDOSE
  4. MIRTAZAPINE [Concomitant]
     Indication: DEPRESSION
     Dosage: UNK
     Route: 065
  5. ATORVASTATIN [Concomitant]
     Indication: HYPERCHOLESTEROLAEMIA
     Dosage: UNK
     Route: 065
  6. GLIPIZIDE [Concomitant]
     Indication: DIABETES MELLITUS
     Dosage: UNK
     Route: 065
  7. GLIMEPIRIDE W/PIOGLITAZONE [Concomitant]
     Indication: DIABETES MELLITUS
     Dosage: UNK
     Route: 065
  8. TRAZODONE [Concomitant]
     Indication: DEPRESSION
     Dosage: UNK
     Route: 065
  9. LOSARTAN [Concomitant]
     Indication: HYPERTENSION
     Dosage: UNK
     Route: 065
  10. CLONAZEPAM [Concomitant]
     Indication: PRODUCT USED FOR UNKNOWN INDICATION
     Dosage: UNK
     Route: 065
  11. UBIDECARENONE [Concomitant]
     Indication: PRODUCT USED FOR UNKNOWN INDICATION
     Dosage: UNK
     Route: 065
  12. ASPIRIN [Concomitant]
     Indication: PRODUCT USED FOR UNKNOWN INDICATION
     Dosage: UNK
     Route: 065

REACTIONS (6)
  - Hypotension [Fatal]
  - Depressed level of consciousness [Fatal]
  - Vomiting [Unknown]
  - Diarrhoea [Unknown]
  - Stomatitis [Unknown]
  - Intentional overdose [Fatal]
